FAERS Safety Report 8130400-8 (Version None)
Quarter: 2012Q1

REPORT INFORMATION
  Report Type: 
  Country: None (occurrence: None)
  Receive Date: 20120210
  Receipt Date: 20120209
  Transmission Date: 20120608
  Serious: Yes (Death, Other)
  Sender: FDA-Public Use
  Company Number: PHHY2012NL003183

PATIENT
  Sex: Male

DRUGS (4)
  1. ZOMETA [Suspect]
     Dosage: 4 MG/ 5ML
     Dates: start: 20110908
  2. ZOMETA [Suspect]
     Indication: LUNG CANCER METASTATIC
     Dosage: 4 MG/ 5 ML
  3. ZOMETA [Suspect]
     Dosage: 4 MG/ 5ML
     Dates: start: 20111103
  4. ZOMETA [Suspect]
     Dosage: 4 MG/ 5ML
     Dates: start: 20111006

REACTIONS (5)
  - DEATH [None]
  - NEOPLASM MALIGNANT [None]
  - NEOPLASM PROGRESSION [None]
  - GENERAL PHYSICAL HEALTH DETERIORATION [None]
  - DRUG INEFFECTIVE [None]
